FAERS Safety Report 17607949 (Version 1)
Quarter: 2020Q2

REPORT INFORMATION
  Report Type: Spontaneous
  Country: CA (occurrence: CA)
  Receive Date: 20200401
  Receipt Date: 20200401
  Transmission Date: 20200713
  Serious: Yes (Hospitalization)
  Sender: FDA-Public Use
  Company Number: CA-OCTA-NGAM03520CA

PATIENT
  Age: 79 Year
  Sex: Female

DRUGS (1)
  1. PANZYGA [Suspect]
     Active Substance: HUMAN IMMUNOGLOBULIN G
     Indication: PRODUCT USED FOR UNKNOWN INDICATION
     Route: 042
     Dates: start: 20200312, end: 20200312

REACTIONS (4)
  - Tachypnoea [Unknown]
  - Dyspnoea [Unknown]
  - Hypertension [Unknown]
  - Tachycardia [Unknown]

NARRATIVE: CASE EVENT DATE: 20200312
